FAERS Safety Report 23922919 (Version 1)
Quarter: 2024Q2

REPORT INFORMATION
  Report Type: Spontaneous
  Country: US (occurrence: US)
  Receive Date: 20240531
  Receipt Date: 20240531
  Transmission Date: 20240716
  Serious: No
  Sender: FDA-Public Use
  Company Number: US-009507513-2405USA008301

PATIENT
  Age: 60 Year
  Sex: Male

DRUGS (1)
  1. KEYTRUDA [Suspect]
     Active Substance: PEMBROLIZUMAB
     Indication: Non-small cell lung cancer
     Dosage: EVERY THREE WEEKS
     Route: 042
     Dates: start: 2021, end: 202211

REACTIONS (2)
  - Fatigue [Recovering/Resolving]
  - Pharyngeal neoplasm benign [Recovering/Resolving]

NARRATIVE: CASE EVENT DATE: 20210101
